FAERS Safety Report 20670453 (Version 1)
Quarter: 2022Q2

REPORT INFORMATION
  Report Type: Spontaneous
  Country: JP (occurrence: JP)
  Receive Date: 20220404
  Receipt Date: 20220404
  Transmission Date: 20220720
  Serious: Yes (Other)
  Sender: FDA-Public Use
  Company Number: JP-TEVA-2022-JP-2023505

PATIENT
  Age: 66 Year
  Sex: Male

DRUGS (4)
  1. TRISENOX [Suspect]
     Active Substance: ARSENIC TRIOXIDE
     Indication: Acute promyelocytic leukaemia
     Route: 042
  2. TRISENOX [Suspect]
     Active Substance: ARSENIC TRIOXIDE
     Route: 042
  3. TRETINOIN [Concomitant]
     Active Substance: TRETINOIN
     Indication: Acute promyelocytic leukaemia
     Route: 065
  4. TRETINOIN [Concomitant]
     Active Substance: TRETINOIN
     Route: 065

REACTIONS (2)
  - Haemorrhagic cerebral infarction [Unknown]
  - Cerebral infarction [Unknown]
